FAERS Safety Report 6778859-2 (Version None)
Quarter: 2010Q2

REPORT INFORMATION
  Report Type: 
  Country: None (occurrence: None)
  Receive Date: 20100618
  Receipt Date: 20100609
  Transmission Date: 20101027
  Serious: Yes (Other)
  Sender: FDA-Public Use
  Company Number: US-JNJFOC-20091205298

PATIENT
  Sex: Female
  Weight: 73.48 kg

DRUGS (12)
  1. IMODIUM A-D [Suspect]
     Route: 048
  2. IMODIUM A-D [Suspect]
     Indication: DIARRHOEA
     Route: 048
  3. ZINC [Concomitant]
     Route: 065
  4. PROVENTIL GENTLEHALER [Concomitant]
     Dosage: AS NEEDED
  5. FLUTICASONE PROPIONATE [Concomitant]
     Dosage: 2 PUFFS TWICE A DAY
     Route: 055
  6. ACTONEL [Concomitant]
     Route: 048
  7. MULTI-VITAMINS [Concomitant]
     Route: 048
  8. EPIPEN JR. [Concomitant]
     Indication: HYPERSENSITIVITY
     Dosage: 0.15 MG/0.3 ML (1:2000) AS NEEDED
     Route: 030
  9. INFUSION SALINE [Concomitant]
     Dosage: AS NEEDED
  10. PROAIR HFA [Concomitant]
     Dosage: 2 PUFFS EVERY 6 HOURS PRN
     Route: 055
  11. CALCIUM CITRATE + VITAMIN D [Concomitant]
     Route: 065
  12. VITAMINE E [Concomitant]
     Route: 065

REACTIONS (6)
  - ANXIETY [None]
  - CHEST PAIN [None]
  - GASTROOESOPHAGEAL REFLUX DISEASE [None]
  - HYPERSENSITIVITY [None]
  - MYOCARDIAL INFARCTION [None]
  - OESOPHAGEAL SPASM [None]
